FAERS Safety Report 16658324 (Version 1)
Quarter: 2019Q3

REPORT INFORMATION
  Report Type: Spontaneous
  Country: US (occurrence: US)
  Receive Date: 20190801
  Receipt Date: 20190801
  Transmission Date: 20191004
  Serious: Yes (Other)
  Sender: FDA-Public Use
  Company Number: None

PATIENT
  Age: 27 Year
  Sex: Female
  Weight: 102.6 kg

DRUGS (2)
  1. AMOXICILLIN 500 MG [Suspect]
     Active Substance: AMOXICILLIN
     Indication: TOOTHACHE
     Dosage: ?          QUANTITY:30 CAPSULE(S);?
     Route: 048
  2. CEPHALEXIN. [Suspect]
     Active Substance: CEPHALEXIN
     Indication: TOOTHACHE
     Dosage: ?          QUANTITY:14 CAPSULE(S);?
     Route: 048

REACTIONS (1)
  - Abdominal pain upper [None]

NARRATIVE: CASE EVENT DATE: 20190711
